FAERS Safety Report 18713160 (Version 1)
Quarter: 2021Q1

REPORT INFORMATION
  Report Type: Spontaneous
  Country: CA (occurrence: CA)
  Receive Date: 20210107
  Receipt Date: 20210107
  Transmission Date: 20210419
  Serious: Yes (Other)
  Sender: FDA-Public Use
  Company Number: CA-JNJFOC-20210106773

PATIENT
  Age: 50 Year
  Sex: Female

DRUGS (5)
  1. INFLIXIMAB, RECOMBINANT [Suspect]
     Active Substance: INFLIXIMAB
     Indication: COLITIS ULCERATIVE
     Route: 042
  2. METHYLPREDNISOLONE. [Concomitant]
     Active Substance: METHYLPREDNISOLONE
     Indication: PREMEDICATION
  3. ACETAMINOPHEN. [Concomitant]
     Active Substance: ACETAMINOPHEN
     Indication: PREMEDICATION
  4. SOLU?MEDROL [Concomitant]
     Active Substance: METHYLPREDNISOLONE SODIUM SUCCINATE
     Indication: PREMEDICATION
     Route: 042
  5. DESOXIMETASONE. [Concomitant]
     Active Substance: DESOXIMETASONE

REACTIONS (14)
  - Anal incontinence [Unknown]
  - Myalgia [Unknown]
  - Rectal haemorrhage [Unknown]
  - Malaise [Unknown]
  - Body temperature increased [Unknown]
  - Anxiety [Unknown]
  - Mobility decreased [Unknown]
  - Arthralgia [Unknown]
  - Pain in extremity [Unknown]
  - Haematochezia [Unknown]
  - Pain [Unknown]
  - Asthenia [Unknown]
  - Blood pressure fluctuation [Unknown]
  - Chills [Unknown]
